FAERS Safety Report 8470816-3 (Version None)
Quarter: 2012Q2

REPORT INFORMATION
  Report Type: 
  Country: None (occurrence: None)
  Receive Date: 20120627
  Receipt Date: 20120615
  Transmission Date: 20120825
  Serious: Yes (Other)
  Sender: FDA-Public Use
  Company Number: JP-JNJFOC-20120601968

PATIENT
  Age: 7 Decade
  Sex: Female
  Weight: 50 kg

DRUGS (4)
  1. REMICADE [Suspect]
     Indication: RHEUMATOID ARTHRITIS
     Route: 042
     Dates: start: 20111114
  2. REMICADE [Suspect]
     Dosage: SIXTH INFUSION
     Route: 042
     Dates: start: 20120530, end: 20120530
  3. ISOTONIC SODIUM CHLORIDE SOLUTION [Concomitant]
     Route: 065
  4. METHOTREXATE [Concomitant]
     Route: 048
     Dates: start: 20060101

REACTIONS (6)
  - PYREXIA [None]
  - BURNING SENSATION [None]
  - CONVULSION [None]
  - BLOOD PRESSURE INCREASED [None]
  - INFUSION RELATED REACTION [None]
  - TREMOR [None]
